FAERS Safety Report 9752088 (Version 2)
Quarter: 2013Q4

REPORT INFORMATION
  Report Type: Report from Study
  Country: CL (occurrence: CL)
  Receive Date: 20131213
  Receipt Date: 20131219
  Transmission Date: 20140711
  Serious: Yes (Other)
  Sender: FDA-Public Use
  Company Number: PHHY2013CL145715

PATIENT
  Age: 53 Year
  Sex: Female

DRUGS (6)
  1. LEPONEX [Suspect]
     Indication: SCHIZOPHRENIA
     Dosage: 150 MG, QD AT NIGHT
     Route: 048
     Dates: start: 20010612
  2. LEPONEX [Suspect]
     Indication: PSYCHOTIC DISORDER
  3. TOPAMAX [Concomitant]
     Dosage: 50 MG, TID
     Dates: start: 2000
  4. PREGABALINA [Concomitant]
     Dosage: 75 MG, BID
     Dates: start: 201308
  5. NOPTIC [Concomitant]
     Indication: HYPNOTHERAPY
     Dosage: UNK, AT NIGHT
  6. NOCTON [Concomitant]
     Indication: HYPNOTHERAPY
     Dosage: UNK AT NIGHT

REACTIONS (3)
  - Angiopathy [Not Recovered/Not Resolved]
  - Fibromyalgia [Not Recovered/Not Resolved]
  - Intermittent claudication [Not Recovered/Not Resolved]
